FAERS Safety Report 6047989-5 (Version None)
Quarter: 2009Q1

REPORT INFORMATION
  Report Type: 
  Country: None (occurrence: None)
  Receive Date: 20090123
  Receipt Date: 20090116
  Transmission Date: 20090719
  Serious: Yes (Death, Hospitalization, Other)
  Sender: FDA-Public Use
  Company Number: PHHY2008JP30142

PATIENT
  Sex: Male
  Weight: 50 kg

DRUGS (6)
  1. ICL670A ICL+DISTAB [Suspect]
     Indication: IRON OVERLOAD
     Dosage: 500 MG/DAY
     Route: 048
     Dates: start: 20080919, end: 20081002
  2. RINDERON [Concomitant]
     Indication: IRON OVERLOAD
     Dosage: 1.5 MG
     Route: 048
     Dates: start: 20080912, end: 20081002
  3. LASIX [Concomitant]
     Dosage: 40 MG
     Route: 048
     Dates: start: 20080318, end: 20081002
  4. URSO 250 [Concomitant]
     Dosage: 300 MG
     Route: 048
     Dates: start: 20080603, end: 20081002
  5. TAKEPRON [Concomitant]
     Dosage: 15 MG
     Route: 048
     Dates: start: 20080603, end: 20081002
  6. BLOOD TRANSFUSION [Concomitant]

REACTIONS (8)
  - CEREBRAL INFARCTION [None]
  - CLONIC CONVULSION [None]
  - HEADACHE [None]
  - HEMIPARESIS [None]
  - HYPERCHOLESTEROLAEMIA [None]
  - LEUKAEMIA [None]
  - LOSS OF CONSCIOUSNESS [None]
  - MUCORMYCOSIS [None]
